FAERS Safety Report 5907509-X (Version None)
Quarter: 2008Q3

REPORT INFORMATION
  Report Type: 
  Country: None (occurrence: None)
  Receive Date: 20080929
  Receipt Date: 20080917
  Transmission Date: 20090109
  Serious: Yes (Hospitalization)
  Sender: FDA-Public Use
  Company Number: 2008US001439

PATIENT
  Age: 83 Year
  Sex: Male
  Weight: 44 kg

DRUGS (17)
  1. AMBISOME [Suspect]
     Indication: FEBRILE NEUTROPENIA
     Dosage: 100 MG, UID/QD, IV NOS
     Route: 042
     Dates: start: 20080222, end: 20080306
  2. VANCOMYCIN HYDROCHLORIDE [Suspect]
     Indication: DRUG USE FOR UNKNOWN INDICATION
     Dosage: 1G, UID/QD, IV NOS
     Route: 042
     Dates: end: 20080303
  3. CIPROFLOXACIN HCL [Suspect]
     Indication: DRUG USE FOR UNKNOWN INDICATION
     Dosage: 600 MG, UID/QD
     Dates: end: 20080303
  4. NEOPAREN [Concomitant]
  5. CANDESARTAN CILEXETIL [Concomitant]
  6. OMEPRAZOLE [Concomitant]
  7. DEPAS (ETIZOLAM) [Concomitant]
  8. ZYLORIC [Concomitant]
  9. MUCOSTA (REBAMIPIDE) [Concomitant]
  10. MAGMITT (MAGNESIUM OXIDE) [Concomitant]
  11. LOXONIN (LOXOPROFEN SODIUM) [Concomitant]
  12. PL [Concomitant]
  13. DASEN (SERRAPEPTASE) [Concomitant]
  14. HUSTAZOL (CLOPERASTINE HYDROCHLORIDE) [Concomitant]
  15. ITRIZOLE (ITRAZONAZOLE) [Concomitant]
  16. MAXIPIME [Concomitant]
  17. AMLODIN [Concomitant]

REACTIONS (3)
  - HERPES ZOSTER [None]
  - HYPOKALAEMIA [None]
  - IMMUNE SYSTEM DISORDER [None]
